FAERS Safety Report 6510772-8 (Version None)
Quarter: 2009Q4

REPORT INFORMATION
  Report Type: 
  Country: None (occurrence: None)
  Receive Date: 20091222
  Receipt Date: 20091210
  Transmission Date: 20100525
  Serious: Yes (Hospitalization)
  Sender: FDA-Public Use
  Company Number: FR-PFIZER INC-2009311620

PATIENT
  Age: 85 Year

DRUGS (11)
  1. ATARAX [Suspect]
     Indication: HYPERSENSITIVITY
     Dosage: 25 MG, UNK
     Route: 048
  2. RISPERDAL [Suspect]
     Indication: DEMENTIA
     Dosage: 0.5 MG, 2X/DAY
     Route: 048
     Dates: start: 20090701
  3. ATENOLOL [Concomitant]
  4. FUROSEMIDE [Concomitant]
  5. LOXEN [Concomitant]
  6. UN-ALFA [Concomitant]
  7. VITAMIN D [Concomitant]
  8. CALCIUM [Concomitant]
  9. VASTAREL [Concomitant]
  10. KARDEGIC [Concomitant]
  11. DAFALGAN [Concomitant]

REACTIONS (11)
  - BRADYCARDIA [None]
  - CONFUSIONAL STATE [None]
  - CONSTIPATION [None]
  - FALL [None]
  - GENERAL PHYSICAL HEALTH DETERIORATION [None]
  - HYPOTENSION [None]
  - MALAISE [None]
  - MENTAL IMPAIRMENT [None]
  - RENAL FAILURE [None]
  - URINARY RETENTION [None]
  - URINARY TRACT INFECTION [None]
